FAERS Safety Report 21695801 (Version 2)
Quarter: 2022Q4

REPORT INFORMATION
  Report Type: Spontaneous
  Country: US (occurrence: US)
  Receive Date: 20221207
  Receipt Date: 20221214
  Transmission Date: 20230112
  Serious: Yes (Hospitalization)
  Sender: FDA-Public Use
  Company Number: US-BRISTOL-MYERS SQUIBB COMPANY-2022-145717

PATIENT
  Age: 79 Year
  Sex: Male
  Weight: 75.7 kg

DRUGS (1)
  1. REVLIMID [Suspect]
     Active Substance: LENALIDOMIDE
     Indication: Diffuse large B-cell lymphoma
     Dosage: DAYS 1-21Q 28DAYS
     Route: 048
     Dates: start: 20221107

REACTIONS (2)
  - COVID-19 [Recovering/Resolving]
  - Off label use [Unknown]
